FAERS Safety Report 5366422-X (Version None)
Quarter: 2007Q2

REPORT INFORMATION
  Report Type: 
  Country: None (occurrence: None)
  Receive Date: 20070622
  Receipt Date: 20070615
  Transmission Date: 20071010
  Serious: Yes (Hospitalization)
  Sender: FDA-Public Use
  Company Number: PHBS2007JP09882

PATIENT
  Age: 73 Year
  Sex: Female

DRUGS (9)
  1. DIOVAN [Suspect]
     Indication: HYPERTENSION
     Dosage: 80 MG, BID
     Route: 048
     Dates: start: 20070215
  2. DIOVAN [Suspect]
     Dosage: 40 MG
     Route: 048
  3. DIOVAN [Suspect]
     Dosage: 80 MG/DAY
     Route: 048
     Dates: start: 20040801
  4. THYRADIN [Concomitant]
     Dosage: 150 UG, UNK
     Route: 048
  5. THYRADIN [Concomitant]
     Dosage: 25 UG, UNK
     Route: 048
  6. NEUROVITAN [Concomitant]
     Dosage: 3 DF, UNK
     Route: 048
  7. FRANDOL [Concomitant]
     Dosage: 40 MG, UNK
  8. LIPIDIL [Concomitant]
     Dosage: 67 MG, UNK
     Route: 048
  9. NOVORAPID [Concomitant]
     Route: 058

REACTIONS (5)
  - ASCITES [None]
  - BLOOD PRESSURE INCREASED [None]
  - FALL [None]
  - OEDEMA [None]
  - RIB FRACTURE [None]
